FAERS Safety Report 9431974 (Version 1)
Quarter: 2013Q3

REPORT INFORMATION
  Report Type: Spontaneous
  Country: IN (occurrence: None)
  Receive Date: 20130726
  Receipt Date: 20130726
  Transmission Date: 20140515
  Serious: Yes (Hospitalization)
  Sender: FDA-Public Use
  Company Number: AMLO20130018

PATIENT
  Age: 65 Year
  Sex: Female

DRUGS (5)
  1. AMLODIPINE BESYLATE [Suspect]
     Indication: PRODUCT USED FOR UNKNOWN INDICATION
     Route: 048
  2. ATORVASTATIN [Suspect]
     Indication: PRODUCT USED FOR UNKNOWN INDICATION
     Route: 048
  3. CLOPIDOGREL [Suspect]
     Route: 048
  4. FUROSEMIDE (FUROSEMIDE) [Concomitant]
  5. INULIN (INSULIN) (INSULIN) [Concomitant]

REACTIONS (2)
  - Rhabdomyolysis [None]
  - Hypokalaemia [None]
